FAERS Safety Report 19938563 (Version 1)
Quarter: 2021Q4

REPORT INFORMATION
  Report Type: Spontaneous
  Country: CA (occurrence: CA)
  Receive Date: 20211011
  Receipt Date: 20211011
  Transmission Date: 20220303
  Serious: Yes (Hospitalization, Other)
  Sender: FDA-Public Use
  Company Number: CA-AUROBINDO-AUR-APL-2021-041200

PATIENT
  Age: 27 Year
  Sex: Male

DRUGS (6)
  1. TOPIRAMATE [Suspect]
     Active Substance: TOPIRAMATE
     Indication: Seizure
     Dosage: UNK
     Route: 065
  2. TOPIRAMATE [Suspect]
     Active Substance: TOPIRAMATE
     Dosage: 500 MILLIGRAM, ONCE A DAY
     Route: 065
  3. TOPIRAMATE [Suspect]
     Active Substance: TOPIRAMATE
     Dosage: 300 MILLIGRAM, ONCE A DAY
     Route: 065
  4. CARBAMAZEPINE [Suspect]
     Active Substance: CARBAMAZEPINE
     Indication: Seizure
     Dosage: 800 MILLIGRAM, ONCE A DAY
     Route: 065
  5. PERAMPANEL [Suspect]
     Active Substance: PERAMPANEL
     Indication: Seizure
     Dosage: 4 MILLIGRAM, ONCE A DAY
     Route: 065
  6. PHENYTOIN [Suspect]
     Active Substance: PHENYTOIN
     Indication: Seizure
     Dosage: UNK
     Route: 065

REACTIONS (8)
  - Hyperammonaemic encephalopathy [Recovered/Resolved]
  - Loss of consciousness [Recovered/Resolved]
  - Somnolence [Recovered/Resolved]
  - Fatigue [Recovered/Resolved]
  - Fall [Recovered/Resolved]
  - Dyskinesia [Recovered/Resolved]
  - Respiratory arrest [Recovered/Resolved]
  - Drug ineffective [Unknown]
